FAERS Safety Report 15545540 (Version 1)
Quarter: 2018Q4

REPORT INFORMATION
  Report Type: Spontaneous
  Country: US (occurrence: US)
  Receive Date: 20181024
  Receipt Date: 20181024
  Transmission Date: 20190205
  Serious: No
  Sender: FDA-Public Use
  Company Number: US-GLAXOSMITHKLINE-US2018188915

PATIENT
  Age: 66 Year
  Sex: Female

DRUGS (1)
  1. VOLTAREN [Suspect]
     Active Substance: DICLOFENAC SODIUM
     Indication: ECZEMA
     Dosage: UNK
     Route: 061
     Dates: start: 201810

REACTIONS (3)
  - Product administered at inappropriate site [Unknown]
  - Expired product administered [Unknown]
  - Product use in unapproved indication [Unknown]
